FAERS Safety Report 8222287-X (Version None)
Quarter: 2012Q1

REPORT INFORMATION
  Report Type: 
  Country: None (occurrence: None)
  Receive Date: 20120320
  Receipt Date: 20120313
  Transmission Date: 20120608
  Serious: Yes (Other)
  Sender: FDA-Public Use
  Company Number: UA-GLAXOSMITHKLINE-B0774568A

PATIENT
  Age: 48 Year
  Sex: Male

DRUGS (1)
  1. FLUTICASONE PROPIONATE/SALMETEROL [Suspect]
     Indication: ASTHMA
     Route: 055
     Dates: start: 20120103, end: 20120115

REACTIONS (4)
  - ASTHMA [None]
  - DRUG INEFFECTIVE [None]
  - BRONCHOSPASM [None]
  - PRODUCT QUALITY ISSUE [None]
